FAERS Safety Report 25896240 (Version 2)
Quarter: 2025Q4

REPORT INFORMATION
  Report Type: Spontaneous
  Country: US (occurrence: US)
  Receive Date: 20251008
  Receipt Date: 20251021
  Transmission Date: 20260117
  Serious: Yes (Hospitalization)
  Sender: VERTEX
  Company Number: US-VERTEX PHARMACEUTICALS-2025-016557

PATIENT
  Age: 19 Year

DRUGS (3)
  1. TRIKAFTA [Suspect]
     Active Substance: ELEXACAFTOR\IVACAFTOR\TEZACAFTOR
     Indication: Cystic fibrosis
     Dosage: UNKNOWN DOSAGE REGIMEN
     Route: 048
  2. LEVALBUTEROL [Concomitant]
     Active Substance: LEVALBUTEROL
  3. PULMOZYME [Concomitant]
     Active Substance: DORNASE ALFA

REACTIONS (8)
  - Cystic fibrosis respiratory infection suppression [Unknown]
  - Treatment noncompliance [Unknown]
  - Mental disorder [Unknown]
  - Illness [Unknown]
  - Staphylococcus test positive [Unknown]
  - Atypical mycobacterium test positive [Unknown]
  - Lung disorder [Unknown]
  - Nasopharyngitis [Unknown]
